FAERS Safety Report 6031385-0 (Version None)
Quarter: 2008Q4

REPORT INFORMATION
  Report Type: 
  Country: None (occurrence: None)
  Receive Date: 20081224
  Receipt Date: 20080808
  Transmission Date: 20090506
  Serious: Yes (Other)
  Sender: FDA-Public Use
  Company Number: FEI2008-1529

PATIENT
  Age: 35 Year
  Sex: Female
  Weight: 64.8644 kg

DRUGS (2)
  1. PARAGARD T 380A [Suspect]
     Indication: CONTRACEPTION
     Dosage: INTRA-UTERINE
     Route: 015
     Dates: start: 20080724, end: 20080814
  2. LEXAPRO [Concomitant]

REACTIONS (1)
  - UTERINE RUPTURE [None]
